FAERS Safety Report 7138176-8 (Version None)
Quarter: 2010Q4

REPORT INFORMATION
  Report Type: 
  Country: None (occurrence: None)
  Receive Date: 20101118
  Receipt Date: 20101108
  Transmission Date: 20110411
  Serious: Yes (Disabling, Other)
  Sender: FDA-Public Use
  Company Number: HA09-113-AE

PATIENT
  Age: 58 Year
  Sex: Male
  Weight: 87 kg

DRUGS (2)
  1. PLACEBO;CELECOXIB;NAPROXEN (UNKNOWN) [Suspect]
     Indication: OSTEOARTHRITIS
     Dosage: 10 MG Q8WEEKS, IV
     Route: 042
     Dates: start: 20080507, end: 20090827
  2. NAPROXEN TABLETS, 500 MG (UNKNOWN) [Suspect]
     Indication: OSTEOARTHRITIS
     Dosage: 2X/DAY, ORAL
     Route: 048
     Dates: start: 20090423, end: 20091004

REACTIONS (3)
  - FOOT FRACTURE [None]
  - OSTEOPENIA [None]
  - TIBIA FRACTURE [None]
